FAERS Safety Report 21478516 (Version 1)
Quarter: 2022Q4

REPORT INFORMATION
  Report Type: Report from Study
  Country: US (occurrence: US)
  Receive Date: 20221019
  Receipt Date: 20221019
  Transmission Date: 20230112
  Serious: Yes (Hospitalization)
  Sender: FDA-Public Use
  Company Number: US-MYLANLABS-2022M1115208

PATIENT
  Age: 21 Year
  Sex: Female

DRUGS (4)
  1. CLOBAZAM [Suspect]
     Active Substance: CLOBAZAM
     Indication: Gelastic seizure
     Dosage: UNK
     Route: 065
  2. TOPIRAMATE [Suspect]
     Active Substance: TOPIRAMATE
     Indication: Gelastic seizure
     Dosage: UNK
     Route: 065
  3. LAMOTRIGINE [Suspect]
     Active Substance: LAMOTRIGINE
     Indication: Gelastic seizure
     Dosage: UNK
     Route: 065
  4. RISPERIDONE [Concomitant]
     Active Substance: RISPERIDONE
     Indication: Oppositional defiant disorder
     Dosage: UNK
     Route: 065

REACTIONS (1)
  - Drug ineffective [Unknown]
